FAERS Safety Report 9571459 (Version 2)
Quarter: 2014Q1

REPORT INFORMATION
  Report Type: Spontaneous
  Country: GB (occurrence: GB)
  Receive Date: 20131001
  Receipt Date: 20140128
  Transmission Date: 20141002
  Serious: Yes (Disabling)
  Sender: FDA-Public Use
  Company Number: GB-RANBAXY-2013R1-73697

PATIENT
  Age: 70 Year
  Sex: Male

DRUGS (3)
  1. DIHYDROCODEINE TABLETS [Suspect]
     Indication: BACK PAIN
     Dosage: 240 MG, 1 DAYS
     Route: 048
  2. MORPHINE [Suspect]
     Indication: BACK PAIN
     Dosage: UNK
     Route: 065
  3. NEURONTIN [Suspect]
     Indication: BACK PAIN
     Dosage: 2700 MG, 1 DAYS
     Route: 065

REACTIONS (4)
  - Cough [Unknown]
  - Overdose [Unknown]
  - Oropharyngeal pain [Unknown]
  - Pharyngeal disorder [Unknown]
